FAERS Safety Report 14980466 (Version 1)
Quarter: 2018Q2

REPORT INFORMATION
  Report Type: Report from Study
  Country: US (occurrence: US)
  Receive Date: 20180606
  Receipt Date: 20180606
  Transmission Date: 20180711
  Serious: Yes (Death, Hospitalization)
  Sender: FDA-Public Use
  Company Number: US-ACTELION-A-US2014-107680

PATIENT
  Age: 75 Year
  Sex: Female
  Weight: 77.55 kg

DRUGS (4)
  1. OPSUMIT [Suspect]
     Active Substance: MACITENTAN
     Dosage: UNK
     Route: 048
  2. REVATIO [Concomitant]
     Active Substance: SILDENAFIL CITRATE
  3. REMODULIN [Concomitant]
     Active Substance: TREPROSTINIL
  4. OPSUMIT [Suspect]
     Active Substance: MACITENTAN
     Indication: PULMONARY ARTERIAL HYPERTENSION
     Dosage: 10 MG, QD
     Route: 048
     Dates: start: 20140904

REACTIONS (15)
  - Death [Fatal]
  - Pain in extremity [Unknown]
  - Fluid overload [Unknown]
  - Chest discomfort [Unknown]
  - Weight increased [Unknown]
  - Dyspnoea [Unknown]
  - Catheter site pain [Unknown]
  - Oedema peripheral [Unknown]
  - Fluid retention [Unknown]
  - Cough [Unknown]
  - Right ventricular failure [Unknown]
  - Abdominal distension [Unknown]
  - Catheter site erythema [Unknown]
  - Fatigue [Unknown]
  - Catheter site swelling [Unknown]

NARRATIVE: CASE EVENT DATE: 20141029
